FAERS Safety Report 8074120-7 (Version None)
Quarter: 2011Q4

REPORT INFORMATION
  Report Type: 
  Country: None (occurrence: None)
  Receive Date: 20111221
  Receipt Date: 20110908
  Transmission Date: 20120403
  Serious: Yes (Hospitalization)
  Sender: FDA-Public Use
  Company Number: PHEH2009US04464

PATIENT
  Age: 79 Year
  Sex: Male

DRUGS (1)
  1. EXJADE [Suspect]
     Indication: LYMPHATIC DISORDER
     Dosage: 1500 MG, QD, ORAL
     Route: 048
     Dates: start: 20090423

REACTIONS (3)
  - DIARRHOEA [None]
  - FREQUENT BOWEL MOVEMENTS [None]
  - ASTHENIA [None]
